FAERS Safety Report 8141340-2 (Version None)
Quarter: 2012Q1

REPORT INFORMATION
  Report Type: 
  Country: None (occurrence: None)
  Receive Date: 20120216
  Receipt Date: 20110520
  Transmission Date: 20120608
  Serious: Yes (Other)
  Sender: FDA-Public Use
  Company Number: US-ROCHE-1029371

PATIENT
  Sex: Female

DRUGS (2)
  1. SORAFENIB [Suspect]
     Indication: OVARIAN EPITHELIAL CANCER
     Dosage: DAYS 1-5 / WEEK
     Route: 065
  2. AVASTIN [Suspect]
     Indication: OVARIAN EPITHELIAL CANCER
     Dosage: 4 WK CYCLES
     Route: 065

REACTIONS (7)
  - HEADACHE [None]
  - HYPERTENSION [None]
  - PULMONARY EMBOLISM [None]
  - PALMAR-PLANTAR ERYTHRODYSAESTHESIA SYNDROME [None]
  - ANAL FISSURE [None]
  - DEEP VEIN THROMBOSIS [None]
  - HEPATIC ENZYME INCREASED [None]
